FAERS Safety Report 12198107 (Version 3)
Quarter: 2016Q2

REPORT INFORMATION
  Report Type: Report from Study
  Country: US (occurrence: US)
  Receive Date: 20160322
  Receipt Date: 20160506
  Transmission Date: 20160815
  Serious: No
  Sender: FDA-Public Use
  Company Number: US-AMGEN-USASL2016032266

PATIENT
  Age: 42 Year
  Sex: Female

DRUGS (1)
  1. ENBREL [Suspect]
     Active Substance: ETANERCEPT
     Indication: PSORIATIC ARTHROPATHY
     Dosage: 50 MG, ONCE A WEEK
     Route: 065
     Dates: start: 20160212

REACTIONS (7)
  - Headache [Not Recovered/Not Resolved]
  - Lymphatic disorder [Unknown]
  - Psoriasis [Unknown]
  - Nausea [Recovered/Resolved]
  - Irritability [Unknown]
  - Viral infection [Unknown]
  - Neck pain [Unknown]

NARRATIVE: CASE EVENT DATE: 2016
